FAERS Safety Report 5795109-4 (Version None)
Quarter: 2008Q2

REPORT INFORMATION
  Report Type: 
  Country: None (occurrence: None)
  Receive Date: 20080630
  Receipt Date: 20080414
  Transmission Date: 20081010
  Serious: No
  Sender: FDA-Public Use
  Company Number: US-BRISTOL-MYERS SQUIBB COMPANY-14150890

PATIENT
  Age: 61 Year
  Sex: Female
  Weight: 64 kg

DRUGS (11)
  1. ORENCIA [Suspect]
     Indication: RHEUMATOID ARTHRITIS
  2. PRILOSEC [Concomitant]
  3. INDERAL [Concomitant]
  4. FOLIC ACID [Concomitant]
  5. SYNTHROID [Concomitant]
  6. PREDNISONE [Concomitant]
  7. MULTI-VITAMIN [Concomitant]
  8. ASCORBIC ACID [Concomitant]
  9. CALCIUM [Concomitant]
  10. ZYRTEC [Concomitant]
  11. METAMUCIL [Concomitant]

REACTIONS (1)
  - SINUSITIS [None]
